FAERS Safety Report 9458922 (Version 2)
Quarter: 2013Q3

REPORT INFORMATION
  Report Type: Spontaneous
  Country: US (occurrence: US)
  Receive Date: 20130814
  Receipt Date: 20130904
  Transmission Date: 20140515
  Serious: Yes (Death, Other)
  Sender: FDA-Public Use
  Company Number: PHEH2013US017204

PATIENT
  Sex: Male

DRUGS (2)
  1. FORADIL INHAL. CAPS. [Suspect]
     Indication: CHRONIC OBSTRUCTIVE PULMONARY DISEASE
     Dosage: 1 PUFF BID
     Dates: start: 2008
  2. COUMADIN//WARFARIN SODIUM [Concomitant]
     Dosage: UNK

REACTIONS (3)
  - Cardiac disorder [Fatal]
  - Dysphagia [Unknown]
  - Dyspnoea [Unknown]
